FAERS Safety Report 4477861-3 (Version None)
Quarter: 2004Q3

REPORT INFORMATION
  Report Type: 
  Country: None (occurrence: None)
  Receive Date: 20040923
  Receipt Date: 20040805
  Transmission Date: 20050211
  Serious: No
  Sender: FDA-Public Use
  Company Number: USA040874709

PATIENT
  Age: 57 Year
  Sex: Female

DRUGS (1)
  1. FORTEO [Suspect]
     Indication: OSTEOPOROSIS
     Dates: start: 20040501

REACTIONS (5)
  - ARTHRALGIA [None]
  - BACK PAIN [None]
  - ERYTHEMA [None]
  - GASTROENTERITIS VIRAL [None]
  - PAIN [None]
